FAERS Safety Report 17275423 (Version 6)
Quarter: 2020Q2

REPORT INFORMATION
  Report Type: Report from Study
  Country: IT (occurrence: IT)
  Receive Date: 20200116
  Receipt Date: 20200404
  Transmission Date: 20200713
  Serious: Yes (Other)
  Sender: FDA-Public Use
  Company Number: IT-ROCHE-2517265

PATIENT
  Age: 37 Year
  Sex: Male
  Weight: 77 kg

DRUGS (24)
  1. METHYLPREDNISOLONE. [Suspect]
     Active Substance: METHYLPREDNISOLONE
     Route: 042
     Dates: start: 20190419, end: 20190419
  2. TRIMETON [Concomitant]
     Active Substance: CHLORPHENIRAMINE MALEATE
     Route: 042
     Dates: start: 20191008, end: 20191008
  3. TACHIPIRINA [Concomitant]
     Active Substance: ACETAMINOPHEN
     Route: 048
     Dates: start: 20171123, end: 20171123
  4. ZANTAC [Concomitant]
     Active Substance: RANITIDINE HYDROCHLORIDE
     Route: 042
     Dates: start: 20190419, end: 20190419
  5. METHYLPREDNISOLONE. [Suspect]
     Active Substance: METHYLPREDNISOLONE
     Route: 042
     Dates: start: 20191008, end: 20191008
  6. OMEPRAZOLE. [Concomitant]
     Active Substance: OMEPRAZOLE
     Route: 042
     Dates: start: 20191008, end: 20191008
  7. METHYLPREDNISOLONE. [Suspect]
     Active Substance: METHYLPREDNISOLONE
     Route: 042
     Dates: start: 20180515, end: 20180515
  8. MIDAZOLAM. [Concomitant]
     Active Substance: MIDAZOLAM
     Route: 042
     Dates: start: 20190301, end: 20190301
  9. TACHIPIRINA [Concomitant]
     Active Substance: ACETAMINOPHEN
     Indication: NASOPHARYNGITIS
     Route: 048
     Dates: start: 20180224, end: 20180304
  10. PARACETAMOLO [Concomitant]
     Active Substance: ACETAMINOPHEN
     Dosage: 13/NOV/2018 AND 08/OCT/2019
     Route: 048
     Dates: start: 20200324, end: 20200324
  11. METHYLPREDNISOLONE. [Suspect]
     Active Substance: METHYLPREDNISOLONE
     Indication: RELAPSING-REMITTING MULTIPLE SCLEROSIS
     Dosage: DATE OF MOST RECENT DOSE OF OCRELIZUMAB PRIOR TO PNEUMONIA: 08/OCT/2019
     Route: 042
     Dates: start: 20171123, end: 20171123
  12. DIPRIVAN [Concomitant]
     Active Substance: PROPOFOL
     Route: 042
     Dates: start: 20190301, end: 20190301
  13. PARACETAMOLO [Concomitant]
     Active Substance: ACETAMINOPHEN
     Dosage: 13/NOV/2018 AND 08/OCT/2019
     Route: 048
     Dates: start: 20180515, end: 20180515
  14. ALGIX [Concomitant]
     Active Substance: ETORICOXIB
     Indication: TENDONITIS
     Route: 048
     Dates: start: 20180413, end: 20180501
  15. FENTANEST [FENTANYL] [Concomitant]
     Route: 042
     Dates: start: 20190301, end: 20190301
  16. RANITIDINE. [Concomitant]
     Active Substance: RANITIDINE
     Route: 042
     Dates: start: 20171123, end: 20171123
  17. ATROPINA [ATROPINE] [Concomitant]
     Indication: POLYP
     Route: 042
     Dates: start: 20190301, end: 20190301
  18. RANITIDINA [RANITIDINE] [Concomitant]
     Active Substance: RANITIDINE
     Route: 042
     Dates: start: 20180515, end: 20180515
  19. CLORFENAMINA [CHLORPHENAMINE] [Concomitant]
     Active Substance: CHLORPHENIRAMINE
     Route: 042
     Dates: start: 20181113, end: 20181113
  20. OMEPRAZOLE. [Concomitant]
     Active Substance: OMEPRAZOLE
     Route: 042
     Dates: start: 20200324, end: 20200324
  21. OCRELIZUMAB. [Suspect]
     Active Substance: OCRELIZUMAB
     Indication: RELAPSING-REMITTING MULTIPLE SCLEROSIS
     Dosage: DATE OF MOST RECENT DOSE OF OCRELIZUMAB PRIOR TO PNEUMONIA: 08/OCT/2019
     Route: 042
     Dates: start: 20171123
  22. METHYLPREDNISOLONE. [Suspect]
     Active Substance: METHYLPREDNISOLONE
     Route: 042
     Dates: start: 20181113, end: 20181113
  23. CLORFENAMINA [CHLORPHENAMINE] [Concomitant]
     Active Substance: CHLORPHENIRAMINE
     Route: 042
     Dates: start: 20200324, end: 20200324
  24. RANITIDINE. [Concomitant]
     Active Substance: RANITIDINE
     Route: 042
     Dates: start: 20181113, end: 20181113

REACTIONS (1)
  - Pneumonia [Recovered/Resolved]

NARRATIVE: CASE EVENT DATE: 20191204
